FAERS Safety Report 8479513-1 (Version None)
Quarter: 2012Q2

REPORT INFORMATION
  Report Type: 
  Country: None (occurrence: None)
  Receive Date: 20120629
  Receipt Date: 20120618
  Transmission Date: 20120825
  Serious: Yes (Other)
  Sender: FDA-Public Use
  Company Number: JP-VERTEX PHARMACEUTICALS INC.-AE-2012-007240

PATIENT
  Age: 60 Year
  Sex: Female

DRUGS (14)
  1. TELAVIC (TELAPREVIR) [Suspect]
     Indication: HEPATITIS C
     Route: 048
     Dates: start: 20120316, end: 20120324
  2. REBETOL [Concomitant]
     Route: 048
     Dates: start: 20120326, end: 20120330
  3. REBETOL [Concomitant]
     Route: 048
     Dates: start: 20120525, end: 20120531
  4. PEG-INTRON [Concomitant]
     Indication: HEPATITIS C
     Route: 051
     Dates: start: 20120316
  5. PROMACTA [Concomitant]
     Route: 048
     Dates: end: 20120327
  6. TELAVIC (TELAPREVIR) [Suspect]
     Route: 048
     Dates: start: 20120326, end: 20120524
  7. REBETOL [Concomitant]
     Route: 048
     Dates: start: 20120421, end: 20120524
  8. LEVOTHYROXINE SODIUM [Concomitant]
     Route: 048
  9. ALLOPURINOL [Concomitant]
     Dates: start: 20120327
  10. REBETOL [Concomitant]
     Indication: HEPATITIS C
     Route: 048
     Dates: start: 20120316, end: 20120324
  11. TELAVIC (TELAPREVIR) [Suspect]
     Route: 048
     Dates: start: 20120525, end: 20120607
  12. RABEPRAZOLE SODIUM [Concomitant]
     Route: 048
     Dates: start: 20120406
  13. PROMACTA [Concomitant]
     Route: 048
     Dates: start: 20120427, end: 20120503
  14. REBETOL [Concomitant]
     Route: 048
     Dates: start: 20120331, end: 20120420

REACTIONS (3)
  - RASH [None]
  - HAEMOGLOBIN DECREASED [None]
  - HYPERURICAEMIA [None]
